FAERS Safety Report 6786367-8 (Version None)
Quarter: 2010Q2

REPORT INFORMATION
  Report Type: 
  Country: None (occurrence: None)
  Receive Date: 20100623
  Receipt Date: 20100616
  Transmission Date: 20101027
  Serious: Yes (Other)
  Sender: FDA-Public Use
  Company Number: US-GENENTECH-302176

PATIENT
  Sex: Female
  Weight: 67 kg

DRUGS (14)
  1. XOLAIR [Suspect]
     Indication: ASTHMA
     Dosage: 375 MG, Q2W
     Route: 058
     Dates: start: 20050114
  2. COUMADIN [Concomitant]
     Indication: CARDIAC DISORDER
     Dosage: UNK
     Route: 048
     Dates: start: 20100401
  3. PULMICORT [Concomitant]
     Indication: ASTHMA
     Dosage: UNK
     Dates: start: 20090101
  4. SPIRIVA [Concomitant]
     Indication: CHRONIC OBSTRUCTIVE PULMONARY DISEASE
     Dosage: UNK
     Dates: start: 20090101
  5. SINGULAIR [Concomitant]
     Indication: HYPERSENSITIVITY
     Dosage: UNK
     Dates: start: 20050101
  6. SINGULAIR [Concomitant]
     Indication: ASTHMA
  7. PATADAY [Concomitant]
     Indication: HYPERSENSITIVITY
     Dosage: UNK
     Dates: start: 20090101
  8. ASTELIN [Concomitant]
     Indication: HYPERSENSITIVITY
     Dosage: UNK
     Dates: start: 20090101
  9. AMIODARONE [Concomitant]
     Indication: CARDIAC DISORDER
     Dosage: 100 MG, QD
     Route: 048
     Dates: start: 20100401, end: 20100514
  10. HCTZ [Concomitant]
     Indication: HYPERTENSION
     Dosage: UNK
     Dates: start: 20100401
  11. LIPITOR [Concomitant]
     Indication: BLOOD CHOLESTEROL
     Dosage: UNK
     Dates: start: 20040101
  12. PROTONIX [Concomitant]
     Indication: GASTROOESOPHAGEAL REFLUX DISEASE
     Dosage: UNK
     Dates: start: 20090101
  13. DIGITEK [Concomitant]
     Indication: CARDIAC DISORDER
     Dosage: UNK
     Dates: start: 20090101
  14. ALTACE [Concomitant]
     Indication: CARDIAC DISORDER
     Dosage: UNK
     Dates: start: 20090101

REACTIONS (1)
  - DYSPNOEA [None]
